FAERS Safety Report 7654617-1 (Version None)
Quarter: 2011Q3

REPORT INFORMATION
  Report Type: 
  Country: None (occurrence: None)
  Receive Date: 20110803
  Receipt Date: 20110725
  Transmission Date: 20111222
  Serious: Yes (Other)
  Sender: FDA-Public Use
  Company Number: US-ASTRAZENECA-2010SE33790

PATIENT
  Age: 56 Year
  Sex: Female

DRUGS (3)
  1. NEXIUM [Suspect]
     Route: 048
  2. RHINOCORT [Suspect]
     Route: 045
  3. SYMBICORT [Suspect]
     Route: 055

REACTIONS (5)
  - MASTOID DISORDER [None]
  - ACTIVITIES OF DAILY LIVING IMPAIRED [None]
  - WEIGHT INCREASED [None]
  - PARAESTHESIA [None]
  - PAIN [None]
